FAERS Safety Report 5729027-4 (Version None)
Quarter: 2008Q2

REPORT INFORMATION
  Report Type: 
  Country: None (occurrence: None)
  Receive Date: 20080430
  Receipt Date: 20080421
  Transmission Date: 20081010
  Serious: Yes (Hospitalization)
  Sender: FDA-Public Use
  Company Number: DSJ-2008-04786

PATIENT
  Age: 69 Year
  Sex: Male
  Weight: 67 kg

DRUGS (7)
  1. OLMESARTAN MEDOXOMIL [Suspect]
     Dosage: 20 MG (20 MG, 1 IN 1 D), PER ORAL
     Route: 048
     Dates: start: 20071101, end: 20080416
  2. OMNIPAQUE 140 [Suspect]
     Indication: COMPUTERISED TOMOGRAM
     Dosage: 150 ML, INTRAVENOUS
     Route: 042
     Dates: start: 20080410, end: 20080410
  3. NORVASC [Suspect]
     Dosage: 5 MG (5 MG, 1 IN 1 D), PER ORAL
     Route: 048
     Dates: start: 20071101, end: 20080416
  4. PLETAAL (CILOSTAZOL) (TABLET) (CILOSTAZOL) [Suspect]
     Dosage: 100 MG (100 MG, 1 IN 1 D), PER ORAL
     Route: 048
     Dates: start: 20070323
  5. RIVOTRIL (CLONAZEPAM) (TABLET) (CLONAZEPAM) [Suspect]
     Dosage: 2 MG (1 MG, 2 IN 1 D), PER ORAL
     Route: 048
     Dates: start: 20070813, end: 20080416
  6. ALLELOCK (OLOPATADINE HYDROCHLORIDE) [Concomitant]
  7. TAVEGYL (CLEMASTINE FUMARATE) [Concomitant]

REACTIONS (2)
  - DRUG RASH WITH EOSINOPHILIA AND SYSTEMIC SYMPTOMS [None]
  - NO THERAPEUTIC RESPONSE [None]
